FAERS Safety Report 25414470 (Version 1)
Quarter: 2025Q2

REPORT INFORMATION
  Report Type: Spontaneous
  Country: US (occurrence: US)
  Receive Date: 20250609
  Receipt Date: 20250609
  Transmission Date: 20250717
  Serious: No
  Sender: SANOFI AVENTIS
  Company Number: US-SA-2025SA162382

PATIENT
  Sex: Female
  Weight: 56.82 kg

DRUGS (5)
  1. DUPIXENT [Suspect]
     Active Substance: DUPILUMAB
     Indication: Dermatitis atopic
     Dosage: 1 DF, QOW
     Route: 058
  2. ESTRADIOL [Concomitant]
     Active Substance: ESTRADIOL
     Dosage: BIW
  3. PIMECROLIMUS [Concomitant]
     Active Substance: PIMECROLIMUS
  4. BLACK COHOSH [Concomitant]
     Active Substance: BLACK COHOSH
  5. BETAMETHASONE\CALCIPOTRIENE [Concomitant]
     Active Substance: BETAMETHASONE\CALCIPOTRIENE

REACTIONS (2)
  - Vision blurred [Unknown]
  - Dry eye [Unknown]
